FAERS Safety Report 4956494-6 (Version None)
Quarter: 2006Q1

REPORT INFORMATION
  Report Type: 
  Country: None (occurrence: None)
  Receive Date: 20060329
  Receipt Date: 20050812
  Transmission Date: 20060701
  Serious: Yes (Hospitalization)
  Sender: FDA-Public Use
  Company Number: US-MERCK-0508USA02625

PATIENT
  Age: 68 Year
  Sex: Female
  Weight: 95 kg

DRUGS (1)
  1. VIOXX [Suspect]
     Indication: BACK PAIN
     Route: 048
     Dates: start: 20000501, end: 20040901

REACTIONS (15)
  - ACUTE MYOCARDIAL INFARCTION [None]
  - ASTHMA [None]
  - ATRIAL FIBRILLATION [None]
  - CORONARY ARTERY DISEASE [None]
  - CYSTOCELE [None]
  - DEPRESSION [None]
  - EYE PAIN [None]
  - HYPOTHYROIDISM [None]
  - INTESTINAL OBSTRUCTION [None]
  - LIVER DISORDER [None]
  - PAIN IN EXTREMITY [None]
  - POSTMENOPAUSAL HAEMORRHAGE [None]
  - RECTOCELE [None]
  - RIB FRACTURE [None]
  - URETHRAL INTRINSIC SPHINCTER DEFICIENCY [None]
